FAERS Safety Report 21509173 (Version 7)
Quarter: 2024Q2

REPORT INFORMATION
  Report Type: Report from Study
  Country: IT (occurrence: IT)
  Receive Date: 20221026
  Receipt Date: 20240618
  Transmission Date: 20240716
  Serious: Yes (Hospitalization, Other)
  Sender: FDA-Public Use
  Company Number: IT-ROCHE-2665052

PATIENT
  Sex: Female

DRUGS (2)
  1. METHOTREXATE SODIUM [Suspect]
     Active Substance: METHOTREXATE SODIUM
     Indication: Metastases to lymph nodes
     Dosage: UNK, ADMINISTERED AT C3D5
     Dates: start: 20200804
  2. OBINUTUZUMAB [Suspect]
     Active Substance: OBINUTUZUMAB
     Indication: Follicular lymphoma
     Dosage: 1000 MG, EVERY 21 DAYS NO OF CYCLE RECEIVED: 3 RECENT DOSE RECEIVED ON 10/JUN/2022
     Route: 042
     Dates: start: 20200612

REACTIONS (9)
  - Acute kidney injury [Recovered/Resolved]
  - COVID-19 pneumonia [Recovered/Resolved]
  - Anaemia [Recovered/Resolved]
  - Neuropathy peripheral [Recovered/Resolved]
  - Constipation [Recovered/Resolved]
  - Muscle spasms [Recovered/Resolved]
  - Arthralgia [Recovered/Resolved]
  - Paraesthesia [Recovered/Resolved]
  - Off label use [Unknown]

NARRATIVE: CASE EVENT DATE: 20200804
